FAERS Safety Report 14017296 (Version 2)
Quarter: 2017Q4

REPORT INFORMATION
  Report Type: Spontaneous
  Country: US (occurrence: US)
  Receive Date: 20170927
  Receipt Date: 20171023
  Transmission Date: 20180321
  Serious: Yes (Hospitalization)
  Sender: FDA-Public Use
  Company Number: US-VERTEX PHARMACEUTICALS-2017-005247

PATIENT
  Age: 34 Year
  Sex: Female

DRUGS (12)
  1. CAYSTON [Concomitant]
     Active Substance: AZTREONAM
  2. AZITHROMYCIN ANHYDROUS. [Concomitant]
     Active Substance: AZITHROMYCIN ANHYDROUS
  3. SODIUM CHLORIDE. [Concomitant]
     Active Substance: SODIUM CHLORIDE
  4. PREDNISONE. [Concomitant]
     Active Substance: PREDNISONE
  5. ORKAMBI [Suspect]
     Active Substance: IVACAFTOR\LUMACAFTOR
     Indication: CYSTIC FIBROSIS
     Dosage: 2 DOSAGE FORM (200-125 MG), BID
     Route: 048
     Dates: start: 20160830
  6. CIPRO [Concomitant]
     Active Substance: CIPROFLOXACIN HYDROCHLORIDE
  7. MONTELUKAST [Concomitant]
     Active Substance: MONTELUKAST SODIUM
  8. HUMALOG [Concomitant]
     Active Substance: INSULIN LISPRO
  9. AMBIEN [Concomitant]
     Active Substance: ZOLPIDEM TARTRATE
  10. ALBUTEROL. [Concomitant]
     Active Substance: ALBUTEROL
     Dosage: UNK
  11. CROMOLYN SODIUM. [Concomitant]
     Active Substance: CROMOLYN SODIUM
     Route: 055
  12. SYMBICORT [Concomitant]
     Active Substance: BUDESONIDE\FORMOTEROL FUMARATE DIHYDRATE

REACTIONS (1)
  - Cystic fibrosis [Not Recovered/Not Resolved]

NARRATIVE: CASE EVENT DATE: 20170913
